FAERS Safety Report 17983329 (Version 1)
Quarter: 2020Q3

REPORT INFORMATION
  Report Type: Report from Study
  Country: US (occurrence: US)
  Receive Date: 20200706
  Receipt Date: 20200706
  Transmission Date: 20201103
  Serious: Yes (Death, Hospitalization, Other)
  Sender: FDA-Public Use
  Company Number: US-ASTRAZENECA-2020SE84257

PATIENT
  Age: 31107 Day
  Sex: Female
  Weight: 45.4 kg

DRUGS (4)
  1. RADIOTHERAPY [Concomitant]
     Active Substance: RADIATION THERAPY
  2. DIGOXIN. [Concomitant]
     Active Substance: DIGOXIN
     Indication: HEART RATE
  3. TAGRISSO [Suspect]
     Active Substance: OSIMERTINIB
     Indication: LUNG CARCINOMA CELL TYPE UNSPECIFIED STAGE III
     Route: 048
     Dates: start: 20191225, end: 20200320
  4. CARBOPLATINS [Concomitant]

REACTIONS (12)
  - Diarrhoea [Unknown]
  - Parainfluenzae virus infection [Unknown]
  - Hyperhidrosis [Unknown]
  - SARS-CoV-2 test negative [Unknown]
  - Pain in extremity [Unknown]
  - Death [Fatal]
  - Pyrexia [Unknown]
  - Immune system disorder [Unknown]
  - Pneumonia [Fatal]
  - Skin exfoliation [Unknown]
  - Dyspnoea [Unknown]
  - Dry skin [Unknown]

NARRATIVE: CASE EVENT DATE: 20200319
